FAERS Safety Report 4942606-7 (Version None)
Quarter: 2006Q1

REPORT INFORMATION
  Report Type: 
  Country: None (occurrence: None)
  Receive Date: 20060310
  Receipt Date: 20060223
  Transmission Date: 20060701
  Serious: Yes (Hospitalization)
  Sender: FDA-Public Use
  Company Number: USA-2006-0023733

PATIENT
  Sex: 0

DRUGS (1)
  1. OXYCONTIN [Suspect]
     Indication: DRUG EXPOSURE DURING PREGNANCY

REACTIONS (3)
  - DRUG EXPOSURE DURING PREGNANCY [None]
  - ILL-DEFINED DISORDER [None]
  - PREMATURE BABY [None]
